FAERS Safety Report 12222831 (Version 1)
Quarter: 2016Q1

REPORT INFORMATION
  Report Type: Spontaneous
  Country: US (occurrence: US)
  Receive Date: 20160330
  Receipt Date: 20160330
  Transmission Date: 20160526
  Serious: Yes (Hospitalization, Other)
  Sender: FDA-Public Use
  Company Number: US-PFIZER INC-2016182075

PATIENT
  Age: 93 Year
  Sex: Male

DRUGS (16)
  1. METOPROLOL. [Concomitant]
     Active Substance: METOPROLOL
  2. LASIX [Suspect]
     Active Substance: FUROSEMIDE
     Indication: HYPERTENSION
     Dosage: 20 MG, ONCE IN 2 DAYS
     Route: 048
     Dates: start: 20150525, end: 20151118
  3. ATENOLOL. [Suspect]
     Active Substance: ATENOLOL
     Route: 065
  4. COUMADIN [Suspect]
     Active Substance: WARFARIN SODIUM
     Indication: ATRIAL FIBRILLATION
     Dosage: 2.5 MG, ONCE IN 4 WEEKS
     Route: 048
     Dates: start: 201405, end: 20151104
  5. CARDURA [Suspect]
     Active Substance: DOXAZOSIN MESYLATE
     Indication: HYPERTENSION
     Route: 048
     Dates: start: 201405, end: 201511
  6. PRILOSEC [Suspect]
     Active Substance: OMEPRAZOLE MAGNESIUM
     Indication: GASTROOESOPHAGEAL REFLUX DISEASE
     Route: 048
     Dates: start: 2011
  7. POTASSIUM [Concomitant]
     Active Substance: POTASSIUM
  8. CHOLECALCIFEROL [Concomitant]
     Active Substance: CHOLECALCIFEROL
  9. OXYGEN. [Concomitant]
     Active Substance: OXYGEN
  10. ERGOCALCIFEROL. [Concomitant]
     Active Substance: ERGOCALCIFEROL
  11. AFLIBERCEPT [Suspect]
     Active Substance: AFLIBERCEPT
     Indication: NEOVASCULAR AGE-RELATED MACULAR DEGENERATION
     Dates: start: 20150811, end: 20150811
  12. SYNTHROID [Suspect]
     Active Substance: LEVOTHYROXINE SODIUM
     Dosage: 125 UNKNOWN, DAILY
     Route: 048
  13. LASIX [Suspect]
     Active Substance: FUROSEMIDE
     Dosage: 40 MG, ONCE IN 2 DAYS
     Route: 048
     Dates: start: 20151119
  14. MULTIVITAMIN + MINERAL [Concomitant]
  15. LUCENTIS [Concomitant]
     Active Substance: RANIBIZUMAB
  16. PRESERVISION AREDS [Concomitant]
     Active Substance: MINERALS\VITAMINS

REACTIONS (5)
  - Pleural effusion [Unknown]
  - Pulmonary hypertension [Recovered/Resolved]
  - Syncope [Unknown]
  - Oxygen saturation decreased [Unknown]
  - Acute respiratory failure [Recovered/Resolved]

NARRATIVE: CASE EVENT DATE: 20151104
